FAERS Safety Report 13010144 (Version 1)
Quarter: 2016Q4

REPORT INFORMATION
  Report Type: Spontaneous
  Country: US (occurrence: US)
  Receive Date: 20161206
  Receipt Date: 20161206
  Transmission Date: 20170207
  Serious: Yes (Hospitalization)
  Sender: FDA-Public Use
  Company Number: None

PATIENT
  Age: 62 Year
  Sex: Male
  Weight: 74 kg

DRUGS (2)
  1. HYDROMORPHONE [Concomitant]
     Active Substance: HYDROMORPHONE
  2. MEMANTINE HYDROCHLORIDE. [Suspect]
     Active Substance: MEMANTINE HYDROCHLORIDE
     Dates: end: 20161111

REACTIONS (12)
  - Intracranial mass [None]
  - Dysphagia [None]
  - Brain scan abnormal [None]
  - Chest pain [None]
  - Brain oedema [None]
  - Oesophageal obstruction [None]
  - Abdominal pain [None]
  - Chest discomfort [None]
  - Dyspnoea [None]
  - Cognitive disorder [None]
  - Metastasis [None]
  - Gliosis [None]

NARRATIVE: CASE EVENT DATE: 20161112
